FAERS Safety Report 6474710-9 (Version None)
Quarter: 2009Q4

REPORT INFORMATION
  Report Type: 
  Country: None (occurrence: None)
  Receive Date: 20091204
  Receipt Date: 20091202
  Transmission Date: 20100525
  Serious: Yes (Death)
  Sender: FDA-Public Use
  Company Number: A0832965A

PATIENT
  Sex: Female

DRUGS (1)
  1. ELTROMBOPAG OLAMINE [Suspect]

REACTIONS (8)
  - ANXIETY [None]
  - CONDITION AGGRAVATED [None]
  - CONTUSION [None]
  - DEATH [None]
  - DISCOMFORT [None]
  - DRUG ADMINISTRATION ERROR [None]
  - NODULE [None]
  - PAIN [None]
